FAERS Safety Report 17756218 (Version 1)
Quarter: 2020Q2

REPORT INFORMATION
  Report Type: Spontaneous
  Country: US (occurrence: US)
  Receive Date: 20200507
  Receipt Date: 20200507
  Transmission Date: 20200714
  Serious: Yes (Hospitalization)
  Sender: FDA-Public Use
  Company Number: None

PATIENT
  Age: 51 Year
  Sex: Female
  Weight: 112.9 kg

DRUGS (5)
  1. ONCASPAR [Suspect]
     Active Substance: PEGASPARGASE
  2. METHOTREXATE. [Suspect]
     Active Substance: METHOTREXATE
  3. CYTARABINE. [Suspect]
     Active Substance: CYTARABINE
  4. CYCLOPHOSPHAMI [Suspect]
     Active Substance: CYCLOPHOSPHAMIDE
  5. MERCAPTOPURINE. [Suspect]
     Active Substance: MERCAPTOPURINE

REACTIONS (2)
  - Pain in extremity [None]
  - Deep vein thrombosis [None]

NARRATIVE: CASE EVENT DATE: 20181129
